FAERS Safety Report 6491753-X (Version None)
Quarter: 2009Q4

REPORT INFORMATION
  Report Type: 
  Country: None (occurrence: None)
  Receive Date: 20091208
  Receipt Date: 20091117
  Transmission Date: 20100525
  Serious: Yes (Other)
  Sender: FDA-Public Use
  Company Number: M0901190

PATIENT
  Age: 47 Year
  Sex: Female

DRUGS (3)
  1. SANDRENA (ESTRADIOL) [Suspect]
     Indication: DRUG USE FOR UNKNOWN INDICATION
     Dosage: TOPICAL
     Route: 061
     Dates: start: 20091019
  2. PROPRANOLOL HYDROCHLORIDE [Concomitant]
  3. MEDROXYPROGESTERONE ACETATE [Concomitant]

REACTIONS (6)
  - BLOOD PRESSURE INCREASED [None]
  - BREAST DISCOMFORT [None]
  - HEADACHE [None]
  - INAPPROPRIATE SCHEDULE OF DRUG ADMINISTRATION [None]
  - MENSTRUAL DISORDER [None]
  - METRORRHAGIA [None]
